FAERS Safety Report 19032480 (Version 1)
Quarter: 2021Q1

REPORT INFORMATION
  Report Type: Spontaneous
  Country: US (occurrence: US)
  Receive Date: 20210319
  Receipt Date: 20210319
  Transmission Date: 20210420
  Serious: No
  Sender: FDA-Public Use
  Company Number: US-ASTELLAS-2020US042975

PATIENT
  Age: 75 Year
  Sex: Female

DRUGS (2)
  1. CRESEMBA [Suspect]
     Active Substance: ISAVUCONAZONIUM SULFATE
     Dosage: 2 DF, ONCE DAILY  [MAINTENANCE DOSE]
     Route: 065
  2. CRESEMBA [Suspect]
     Active Substance: ISAVUCONAZONIUM SULFATE
     Indication: PRODUCT USED FOR UNKNOWN INDICATION
     Dosage: UNK, UNKNOWN FREQ. [LOADING DOSE]
     Route: 065
     Dates: start: 20201117

REACTIONS (2)
  - Nausea [Unknown]
  - Dizziness [Unknown]
